FAERS Safety Report 12650986 (Version 1)
Quarter: 2016Q3

REPORT INFORMATION
  Report Type: Spontaneous
  Country: US (occurrence: None)
  Receive Date: 20160812
  Receipt Date: 20160812
  Transmission Date: 20161109
  Serious: Yes (Other)
  Sender: FDA-Public Use
  Company Number: None

PATIENT
  Age: 58 Year
  Sex: Female
  Weight: 57.61 kg

DRUGS (7)
  1. VITAMIN D [Concomitant]
     Active Substance: CHOLECALCIFEROL
  2. SKELAXIN [Concomitant]
     Active Substance: METAXALONE
  3. SLOMAG [Concomitant]
  4. RESVERITROL [Concomitant]
  5. HERCEPTIN [Suspect]
     Active Substance: TRASTUZUMAB
     Indication: NEOPLASM MALIGNANT
     Dosage: EVERY 4 WKS INTO A VEIN
     Route: 042
  6. THYROID [Concomitant]
     Active Substance: LEVOTHYROXINE\LIOTHYRONINE
  7. EMERGENC [Concomitant]

REACTIONS (8)
  - Erythema [None]
  - Burning sensation [None]
  - Lip swelling [None]
  - Blister [None]
  - Rash [None]
  - Lacrimation increased [None]
  - Lip blister [None]
  - Peripheral swelling [None]

NARRATIVE: CASE EVENT DATE: 20160711
